FAERS Safety Report 18762545 (Version 1)
Quarter: 2021Q1

REPORT INFORMATION
  Report Type: Spontaneous
  Country: US (occurrence: US)
  Receive Date: 20210119
  Receipt Date: 20210119
  Transmission Date: 20210419
  Serious: Yes (Other)
  Sender: FDA-Public Use
  Company Number: None

PATIENT
  Age: 69 Year
  Sex: Male
  Weight: 87.75 kg

DRUGS (10)
  1. NORTHERA [Suspect]
     Active Substance: DROXIDOPA
     Indication: AUTONOMIC NEUROPATHY
     Dosage: ?          QUANTITY:1 CAPSULE(S);OTHER FREQUENCY:AT 16:00;?
     Dates: start: 20191215, end: 20191230
  2. CRESTOR [Concomitant]
     Active Substance: ROSUVASTATIN CALCIUM
  3. LISINOPRIL. [Concomitant]
     Active Substance: LISINOPRIL
  4. ELIQUIS [Concomitant]
     Active Substance: APIXABAN
  5. GLIPIZIDE. [Concomitant]
     Active Substance: GLIPIZIDE
  6. CPAP [Concomitant]
     Active Substance: DEVICE
  7. JARDIANCE [Concomitant]
     Active Substance: EMPAGLIFLOZIN
  8. OZEMPIC [Concomitant]
     Active Substance: SEMAGLUTIDE
  9. ASPIRIN. [Concomitant]
     Active Substance: ASPIRIN
  10. ONE A DAY PLUS IRON [Concomitant]

REACTIONS (5)
  - Optic atrophy [None]
  - Optic ischaemic neuropathy [None]
  - Eye swelling [None]
  - Iris haemorrhage [None]
  - Visual impairment [None]

NARRATIVE: CASE EVENT DATE: 20191231
